FAERS Safety Report 6346992-5 (Version None)
Quarter: 2009Q3

REPORT INFORMATION
  Report Type: 
  Country: None (occurrence: None)
  Receive Date: 20090908
  Receipt Date: 20090908
  Transmission Date: 20100115
  Serious: Yes (Other)
  Sender: FDA-Public Use
  Company Number: None

PATIENT
  Sex: Male
  Weight: 85.5 kg

DRUGS (2)
  1. NIASPAN [Suspect]
     Indication: BLOOD CHOLESTEROL
     Dosage: 1 TABLET DAILY
     Dates: start: 20070901
  2. NIASPAN [Suspect]
     Indication: BLOOD TRIGLYCERIDES
     Dosage: 1 TABLET DAILY
     Dates: start: 20070901

REACTIONS (1)
  - HEADACHE [None]
